FAERS Safety Report 5255547-5 (Version None)
Quarter: 2007Q1

REPORT INFORMATION
  Report Type: 
  Country: None (occurrence: None)
  Receive Date: 20070305
  Receipt Date: 20070228
  Transmission Date: 20070707
  Serious: Yes (Hospitalization)
  Sender: FDA-Public Use
  Company Number: FRWYE810128FEB07

PATIENT
  Age: 37 Year
  Sex: Female
  Weight: 67 kg

DRUGS (8)
  1. RAPAMUNE [Suspect]
     Indication: PROPHYLAXIS AGAINST TRANSPLANT REJECTION
     Dosage: 4 MG TOTAL DAILY
     Route: 048
     Dates: start: 20060518, end: 20061001
  2. AZATHIOPRINE SODIUM [Suspect]
     Dosage: UNKNOWN
     Route: 048
     Dates: end: 20061004
  3. EPOGEN [Concomitant]
     Indication: IRON DEFICIENCY ANAEMIA
     Dosage: UNKNOWN
  4. MOPRAL [Concomitant]
     Route: 048
     Dates: start: 20060415
  5. LASIX [Concomitant]
     Route: 048
     Dates: start: 20060515
  6. IRON [Concomitant]
     Indication: IRON DEFICIENCY ANAEMIA
     Dosage: UNKNOWN
  7. ALLOPURINOL [Suspect]
     Dosage: 200 MG DAILY
     Route: 048
     Dates: start: 20040715, end: 20061004
  8. CELLCEPT [Suspect]
     Route: 048
     Dates: start: 20060415, end: 20061001

REACTIONS (2)
  - BONE MARROW FAILURE [None]
  - RENAL FAILURE CHRONIC [None]
